FAERS Safety Report 9423640 (Version 1)
Quarter: 2013Q3

REPORT INFORMATION
  Report Type: Spontaneous
  Country: PT (occurrence: PT)
  Receive Date: 20130726
  Receipt Date: 20130726
  Transmission Date: 20140515
  Serious: Yes (Other)
  Sender: FDA-Public Use
  Company Number: PT-ROCHE-1251728

PATIENT
  Age: 78 Year
  Sex: Female
  Weight: 70 kg

DRUGS (5)
  1. RIVOTRIL [Suspect]
     Indication: RESTLESS LEGS SYNDROME
     Dosage: 1 TABLET OF 2MG WHEN NECESSARY
     Route: 065
     Dates: start: 20130719, end: 20130719
  2. SEROQUEL [Interacting]
     Indication: PRODUCT USED FOR UNKNOWN INDICATION
     Dosage: 1 TABLET AT BREAKFAST; 1 AT LUNCH; 2 AT DINNER
     Route: 065
  3. INDAPAMIDA [Interacting]
     Indication: PRODUCT USED FOR UNKNOWN INDICATION
     Dosage: 1 TABLET AT BREAKFAST
     Route: 065
  4. AXURA [Interacting]
     Indication: PRODUCT USED FOR UNKNOWN INDICATION
     Dosage: 1 TABLET AT BREAKFAST
     Route: 065
  5. ANAFRANIL [Concomitant]
     Dosage: 1 TABLET AT DINNER
     Route: 065

REACTIONS (6)
  - Somnolence [Recovered/Resolved]
  - Gait disturbance [Recovered/Resolved]
  - Asthenia [Recovered/Resolved]
  - Unresponsive to stimuli [Recovered/Resolved]
  - Drug interaction [Unknown]
  - Speech disorder [Recovered/Resolved]
